FAERS Safety Report 5361902-5 (Version None)
Quarter: 2007Q2

REPORT INFORMATION
  Report Type: 
  Country: None (occurrence: None)
  Receive Date: 20070619
  Receipt Date: 20070605
  Transmission Date: 20071010
  Serious: Yes (Other)
  Sender: FDA-Public Use
  Company Number: CO-AMGEN-US229295

PATIENT
  Sex: Female

DRUGS (5)
  1. ENBREL [Suspect]
     Indication: RHEUMATOID ARTHRITIS
     Route: 058
     Dates: start: 20030101, end: 20070606
  2. ACETYLSALICYLIC ACID SRT [Concomitant]
     Indication: PROPHYLAXIS
  3. DICLOFENAC [Concomitant]
     Indication: PAIN
  4. CALCITRIOL [Concomitant]
  5. FOLIC ACID [Concomitant]

REACTIONS (2)
  - CUTANEOUS VASCULITIS [None]
  - SYSTEMIC LUPUS ERYTHEMATOSUS [None]
